FAERS Safety Report 21960470 (Version 1)
Quarter: 2023Q1

REPORT INFORMATION
  Report Type: Spontaneous
  Country: US (occurrence: None)
  Receive Date: 20230207
  Receipt Date: 20230207
  Transmission Date: 20230417
  Serious: No
  Sender: FDA-Public Use
  Company Number: US-Merck Healthcare KGaA-9381319

PATIENT
  Sex: Male

DRUGS (2)
  1. REBIF [Suspect]
     Active Substance: INTERFERON BETA-1A
     Indication: Multiple sclerosis
     Dosage: 44 MCG/0.5 ML
     Route: 058
     Dates: start: 202006
  2. GEMTESA [Concomitant]
     Active Substance: VIBEGRON
     Indication: Product used for unknown indication

REACTIONS (5)
  - Fall [Unknown]
  - Mobility decreased [Unknown]
  - Dysstasia [Unknown]
  - Urinary tract infection [Unknown]
  - Urinary retention [Unknown]
